FAERS Safety Report 8410752-1 (Version None)
Quarter: 2012Q2

REPORT INFORMATION
  Report Type: 
  Country: None (occurrence: None)
  Receive Date: 20120605
  Receipt Date: 20120524
  Transmission Date: 20120825
  Serious: Yes (Other)
  Sender: FDA-Public Use
  Company Number: US-JNJFOC-20120520438

PATIENT
  Sex: Female

DRUGS (3)
  1. REMICADE [Suspect]
     Route: 042
     Dates: start: 20120214
  2. REMICADE [Suspect]
     Indication: CROHN'S DISEASE
     Route: 042
  3. LEVAQUIN [Suspect]
     Indication: UPPER RESPIRATORY TRACT INFECTION
     Route: 048
     Dates: start: 20120101, end: 20120101

REACTIONS (8)
  - ABSCESS [None]
  - UPPER RESPIRATORY TRACT INFECTION [None]
  - BLOOD PRESSURE FLUCTUATION [None]
  - WEIGHT FLUCTUATION [None]
  - DEHYDRATION [None]
  - PALPITATIONS [None]
  - RASH [None]
  - CONSTIPATION [None]
